FAERS Safety Report 7270410-6 (Version None)
Quarter: 2011Q1

REPORT INFORMATION
  Report Type: 
  Country: None (occurrence: None)
  Receive Date: 20110202
  Receipt Date: 20110127
  Transmission Date: 20110831
  Serious: Yes (Hospitalization, Other)
  Sender: FDA-Public Use
  Company Number: JP-PFIZER INC-2010168510

PATIENT
  Age: 73 Year
  Sex: Male

DRUGS (13)
  1. LYRICA [Suspect]
     Dosage: 75 MG, 2X/DAY
     Route: 048
     Dates: start: 20101113, end: 20101114
  2. ASPIRIN [Concomitant]
     Dosage: 100 MG, DAILY
     Route: 048
  3. ZYLORIC ^FAES^ [Concomitant]
     Dosage: 100 MG, DAILY
     Route: 048
  4. INSULIN [Concomitant]
     Dosage: UNK
  5. ARTIST [Concomitant]
     Dosage: 10 MG, DAILY
     Route: 048
  6. LYRICA [Suspect]
     Indication: DIABETIC NEUROPATHY
     Dosage: 75 MG, 1X/DAY
     Route: 048
     Dates: start: 20101112, end: 20101112
  7. LOSARTAN POTASSIUM AND HYDROCHLOROTHIAZIDE [Concomitant]
     Dosage: UNK
     Route: 048
  8. WARFARIN [Concomitant]
     Dosage: 1 MG, DAILY
     Route: 048
  9. CRESTOR [Concomitant]
     Dosage: 2.5 MG, DAILY
     Route: 048
  10. ADALAT CC [Concomitant]
     Dosage: 20 MG, DAILY
     Route: 048
  11. HUMALOG [Concomitant]
  12. PLAVIX [Concomitant]
     Dosage: 75 MG, DAILY
     Route: 048
  13. TAKEPRON [Concomitant]
     Dosage: 30 MG, DAILY
     Route: 048

REACTIONS (5)
  - CHEST DISCOMFORT [None]
  - OEDEMA PERIPHERAL [None]
  - DYSPNOEA [None]
  - CARDIOMEGALY [None]
  - PLEURAL EFFUSION [None]
